FAERS Safety Report 7775895-4 (Version None)
Quarter: 2011Q3

REPORT INFORMATION
  Report Type: 
  Country: None (occurrence: None)
  Receive Date: 20110923
  Receipt Date: 20110912
  Transmission Date: 20111222
  Serious: Yes (Hospitalization, Other)
  Sender: FDA-Public Use
  Company Number: ES-ELI_LILLY_AND_COMPANY-ES201107003616

PATIENT
  Sex: Female
  Weight: 54 kg

DRUGS (3)
  1. FORTEO [Suspect]
     Indication: OSTEOPOROSIS
     Dosage: 20 UG, QD
     Route: 058
     Dates: start: 20110629
  2. ENALAPRIL MALEATE [Concomitant]
     Indication: HYPERTENSION
     Dosage: 1 DF, QD
     Route: 048
  3. SIMVASTATINA [Concomitant]
     Indication: BLOOD CHOLESTEROL INCREASED
     Dosage: 1 DF, QD
     Route: 048

REACTIONS (3)
  - ARRHYTHMIA [None]
  - SYNCOPE [None]
  - ATRIAL FIBRILLATION [None]
